FAERS Safety Report 24593641 (Version 5)
Quarter: 2025Q2

REPORT INFORMATION
  Report Type: Spontaneous
  Country: US (occurrence: US)
  Receive Date: 20241108
  Receipt Date: 20250624
  Transmission Date: 20250716
  Serious: Yes (Hospitalization, Other)
  Sender: SANOFI AVENTIS
  Company Number: US-SA-2024SA321199

PATIENT
  Age: 66 Year
  Sex: Female

DRUGS (4)
  1. DUPIXENT [Suspect]
     Active Substance: DUPILUMAB
     Indication: Chronic obstructive pulmonary disease
     Dosage: 300 MG, QOW
     Route: 058
     Dates: start: 202410, end: 202501
  2. DUPIXENT [Suspect]
     Active Substance: DUPILUMAB
     Dosage: 300 MG, QOW
     Route: 058
     Dates: start: 2025, end: 202505
  3. COREG [Suspect]
     Active Substance: CARVEDILOL
  4. HYDROXYZINE [Concomitant]
     Active Substance: HYDROXYZINE HYDROCHLORIDE

REACTIONS (16)
  - Atrial fibrillation [Unknown]
  - Blindness unilateral [Unknown]
  - Aphonia [Unknown]
  - Infection [Unknown]
  - Dyspnoea [Unknown]
  - Dysphonia [Unknown]
  - Cough [Unknown]
  - Anxiety [Unknown]
  - Nausea [Unknown]
  - Scab [Unknown]
  - Visual impairment [Unknown]
  - Malaise [Unknown]
  - Herpes zoster [Unknown]
  - Headache [Unknown]
  - Eye pruritus [Unknown]
  - Chronic obstructive pulmonary disease [Unknown]

NARRATIVE: CASE EVENT DATE: 20240101
